FAERS Safety Report 4457271-5 (Version None)
Quarter: 2004Q3

REPORT INFORMATION
  Report Type: 
  Country: None (occurrence: None)
  Receive Date: 20040921
  Receipt Date: 20040913
  Transmission Date: 20050211
  Serious: Yes (Death, Hospitalization, Other)
  Sender: FDA-Public Use
  Company Number: US-JNJFOC-20040903476

PATIENT
  Age: 60 Year
  Sex: Male

DRUGS (2)
  1. ACETAMINOPHEN [Suspect]
     Indication: PAIN
     Dosage: ORAL
     Route: 048
  2. OPIODS (OPIOIDS) [Suspect]
     Indication: DRUG USE FOR UNKNOWN INDICATION
     Dosage: ORAL
     Route: 048

REACTIONS (7)
  - ACIDOSIS [None]
  - AMMONIA INCREASED [None]
  - BLOOD CREATININE INCREASED [None]
  - COMA [None]
  - HYPOGLYCAEMIA [None]
  - INTERNATIONAL NORMALISED RATIO ABNORMAL [None]
  - TRANSAMINASES INCREASED [None]
